FAERS Safety Report 5022294-4 (Version None)
Quarter: 2006Q2

REPORT INFORMATION
  Report Type: 
  Country: None (occurrence: None)
  Receive Date: 20060609
  Receipt Date: 20060601
  Transmission Date: 20061013
  Serious: Yes (Hospitalization)
  Sender: FDA-Public Use
  Company Number: S200600157

PATIENT
  Age: 6 Year
  Sex: Female

DRUGS (1)
  1. AMOXICILLIN [Suspect]
     Indication: SINUSITIS
     Route: 065
     Dates: start: 20041101

REACTIONS (7)
  - ACUTE GENERALISED EXANTHEMATOUS PUSTULOSIS [None]
  - BLISTER [None]
  - CONDITION AGGRAVATED [None]
  - RASH [None]
  - RASH PUSTULAR [None]
  - SKIN EXFOLIATION [None]
  - STAPHYLOCOCCAL SCALDED SKIN SYNDROME [None]
